FAERS Safety Report 7754133-2 (Version None)
Quarter: 2011Q3

REPORT INFORMATION
  Report Type: 
  Country: None (occurrence: None)
  Receive Date: 20110915
  Receipt Date: 20110912
  Transmission Date: 20111222
  Serious: Yes (Hospitalization)
  Sender: FDA-Public Use
  Company Number: US-VERTEX PHARMACEUTICALS INC.-AE-2011-001428

PATIENT
  Sex: Female

DRUGS (3)
  1. RIBAVIRIN [Concomitant]
     Indication: HEPATITIS C
     Dates: start: 20110701, end: 20110901
  2. INCIVEK [Suspect]
     Indication: HEPATITIS C
     Route: 048
     Dates: start: 20110701
  3. PEGASYS [Concomitant]
     Indication: HEPATITIS C
     Dates: start: 20110701, end: 20110901

REACTIONS (4)
  - ANAEMIA [None]
  - WHITE BLOOD CELL COUNT DECREASED [None]
  - HAEMATEMESIS [None]
  - NAUSEA [None]
